FAERS Safety Report 24868741 (Version 1)
Quarter: 2025Q1

REPORT INFORMATION
  Report Type: Spontaneous
  Country: JP (occurrence: JP)
  Receive Date: 20250121
  Receipt Date: 20250121
  Transmission Date: 20250409
  Serious: Yes (Other)
  Sender: SYMOGEN
  Company Number: JP-PARTNER THERAPEUTICS-2025PTX00004

PATIENT

DRUGS (1)
  1. SARGRAMOSTIM [Suspect]
     Active Substance: SARGRAMOSTIM

REACTIONS (1)
  - Oxygen saturation decreased [Unknown]
